FAERS Safety Report 20016045 (Version 1)
Quarter: 2021Q4

REPORT INFORMATION
  Report Type: Spontaneous
  Country: US (occurrence: None)
  Receive Date: 20211102
  Receipt Date: 20211102
  Transmission Date: 20220303
  Serious: Yes (Death)
  Sender: FDA-Public Use
  Company Number: None

PATIENT
  Sex: Male
  Weight: 88.50 kg

DRUGS (20)
  1. VELCADE [Suspect]
     Active Substance: BORTEZOMIB
     Indication: Non-Hodgkin^s lymphoma
     Dosage: OTHER FREQUENCY : ONCE PER WEEK;?
     Route: 058
  2. DARZALEX FASPRO [Suspect]
     Active Substance: DARATUMUMAB\HYALURONIDASE-FIHJ
     Indication: Non-Hodgkin^s lymphoma
     Dosage: OTHER FREQUENCY : EVERY 2 WEEKS;?
     Route: 058
  3. FAMOTIDINE [Concomitant]
     Active Substance: FAMOTIDINE
  4. NIVESTYM [Concomitant]
     Active Substance: FILGRASTIM-AAFI
  5. ATORVASTATIN [Concomitant]
     Active Substance: ATORVASTATIN
  6. VITAMIN D3 [Concomitant]
     Active Substance: CHOLECALCIFEROL
  7. PLAVIX [Concomitant]
     Active Substance: CLOPIDOGREL BISULFATE
  8. FUROSEMIDE [Concomitant]
     Active Substance: FUROSEMIDE
  9. MAGNESIUM OXIDE [Concomitant]
     Active Substance: MAGNESIUM OXIDE
  10. MEDROL [Concomitant]
     Active Substance: METHYLPREDNISOLONE
  11. METOPROLOL [Concomitant]
     Active Substance: METOPROLOL
  12. ONDANSETRON [Concomitant]
     Active Substance: ONDANSETRON
  13. XARELTO [Concomitant]
     Active Substance: RIVAROXABAN
  14. VALACYCLOVIR [Concomitant]
     Active Substance: VALACYCLOVIR HYDROCHLORIDE
  15. TORSEMIDE [Concomitant]
     Active Substance: TORSEMIDE
  16. ALLOPURINOL [Concomitant]
     Active Substance: ALLOPURINOL
  17. CLOPIDOGREL [Concomitant]
     Active Substance: CLOPIDOGREL BISULFATE
  18. PRADAXA [Concomitant]
     Active Substance: DABIGATRAN ETEXILATE MESYLATE
  19. DIGOXIN [Concomitant]
     Active Substance: DIGOXIN
  20. PANTOPRAZOLE [Concomitant]
     Active Substance: PANTOPRAZOLE

REACTIONS (1)
  - Death [None]
